FAERS Safety Report 9210706 (Version 1)
Quarter: 2013Q2

REPORT INFORMATION
  Report Type: Spontaneous
  Country: GR (occurrence: GR)
  Receive Date: 20130404
  Receipt Date: 20130404
  Transmission Date: 20140414
  Serious: Yes (Death, Other)
  Sender: FDA-Public Use
  Company Number: GR-ACTAVIS-2013-05416

PATIENT
  Age: 22 Month
  Sex: Female

DRUGS (3)
  1. METHYLPREDNISOLONE ACETATE [Suspect]
     Indication: KAWASAKI^S DISEASE
     Dosage: PULSE THERAPY: 30 MG/KG, Q24H, FOR THREE DAYS (TWO TIMES)
  2. ASPIRIN [Suspect]
     Indication: KAWASAKI^S DISEASE
     Dosage: 5 MG/KG, DAILY
     Route: 065
  3. ASPIRIN [Suspect]
     Dosage: 100 MG/KG, DAILY
     Route: 065

REACTIONS (10)
  - Thrombocytosis [Fatal]
  - Coronary artery disease [Fatal]
  - Coronary artery aneurysm [Fatal]
  - Myocardial ischaemia [Fatal]
  - Withdrawal syndrome [Fatal]
  - Juvenile idiopathic arthritis [None]
  - Mitral valve incompetence [None]
  - Pulse absent [None]
  - General physical health deterioration [None]
  - Aortic valve incompetence [None]
